FAERS Safety Report 9492502 (Version 2)
Quarter: 2013Q4

REPORT INFORMATION
  Report Type: Spontaneous
  Country: US (occurrence: US)
  Receive Date: 20130830
  Receipt Date: 20131011
  Transmission Date: 20140711
  Serious: No
  Sender: FDA-Public Use
  Company Number: US-PFIZER INC-2013248457

PATIENT
  Age: 66 Year
  Sex: Female
  Weight: 54.42 kg

DRUGS (5)
  1. CLINDAMYCIN PHOSPHATE [Suspect]
     Indication: VAGINAL INFECTION
     Dosage: UNK
     Route: 067
     Dates: start: 20130824, end: 20130825
  2. LISINOPRIL [Concomitant]
     Indication: HYPERTENSION
     Dosage: 10 MG, UNK
  3. VIVELLE-DOT [Concomitant]
     Indication: HORMONE REPLACEMENT THERAPY
     Dosage: 0.025 MG, UNK
  4. PROMETRIUM [Concomitant]
     Indication: HORMONE REPLACEMENT THERAPY
     Dosage: 100 MG, UNK
  5. BUPROPION HCL XL [Concomitant]
     Dosage: 150 MG, UNK

REACTIONS (2)
  - Vulvovaginal rash [Not Recovered/Not Resolved]
  - Rash [Not Recovered/Not Resolved]
